FAERS Safety Report 7113348-7 (Version None)
Quarter: 2010Q4

REPORT INFORMATION
  Report Type: 
  Country: None (occurrence: None)
  Receive Date: 20101119
  Receipt Date: 20101115
  Transmission Date: 20110411
  Serious: Yes (Death, Hospitalization)
  Sender: FDA-Public Use
  Company Number: HR-JNJFOC-20100510008

PATIENT
  Sex: Female

DRUGS (3)
  1. RISPOLEPT CONSTA [Suspect]
     Indication: SCHIZOPHRENIA
     Route: 065
  2. CLOZAPINE [Concomitant]
  3. QUETIAPINE [Concomitant]

REACTIONS (3)
  - CARDIAC DISORDER [None]
  - CARDIAC FAILURE [None]
  - MYOCARDIAL INFARCTION [None]
